FAERS Safety Report 18256195 (Version 5)
Quarter: 2020Q4

REPORT INFORMATION
  Report Type: Spontaneous
  Country: US (occurrence: US)
  Receive Date: 20200911
  Receipt Date: 20201022
  Transmission Date: 20210113
  Serious: No
  Sender: FDA-Public Use
  Company Number: US-AMGEN-USASP2020146244

PATIENT
  Age: 38 Year
  Sex: Male
  Weight: 89.7 kg

DRUGS (13)
  1. PROTOPIC [Concomitant]
     Active Substance: TACROLIMUS
     Dosage: UNK UNK, BID
     Route: 061
     Dates: start: 20191122
  2. ALBUTEROL [SALBUTAMOL] [Concomitant]
     Active Substance: ALBUTEROL
     Dosage: UNK UNK, AS NECESSARY [1-2 PUFFS EVERY 8-12 HRS)INHALER]
  3. DIPROLENE AF [Concomitant]
     Active Substance: BETAMETHASONE DIPROPIONATE
     Indication: PSORIASIS
     Dosage: UNK UNK, BID
     Route: 061
  4. ZITHROMAX [Concomitant]
     Active Substance: AZITHROMYCIN DIHYDRATE
     Dosage: 250 MILLIGRAM (250MG TABLET, ONE TABLET BY MOUTH DAILY TWO TABLETS TODAY, THEN ONE TABLET DAILY FOR
     Dates: start: 2020
  5. CARMOL [UREA] [Concomitant]
     Indication: PSORIASIS
     Dosage: UNK UNK, QD
     Dates: start: 20190513
  6. PROVENTIL HFA [SALBUTAMOL] [Concomitant]
     Dosage: UNK UNK, AS NECESSARY (1-2 PUFFS EVERY 8-12 HRS PRN)
  7. OTEZLA [Suspect]
     Active Substance: APREMILAST
     Indication: PSORIASIS
     Dosage: 30 MILLIGRAM, BID
     Route: 048
     Dates: start: 20190425
  8. SALICYLIC ACID. [Concomitant]
     Active Substance: SALICYLIC ACID
     Dosage: UNK UNK, BID (10 % CREAM)
     Route: 061
     Dates: start: 2020
  9. VENTOLIN HFA [Concomitant]
     Active Substance: ALBUTEROL SULFATE
     Dosage: UNK UNK, AS NECESSARY 1-2 PUFFS EVERY 8-12 HRS PRN)
  10. UREA. [Concomitant]
     Active Substance: UREA
     Indication: PSORIASIS
     Dosage: UNK
     Dates: start: 20190513, end: 2020
  11. SALICYLIC ACID. [Concomitant]
     Active Substance: SALICYLIC ACID
     Indication: PSORIASIS
     Dosage: UNK [(QD OR SOMETIME BID)20 % CREAM]
     Route: 061
     Dates: start: 20190425, end: 2020
  12. TEMOVATE [Concomitant]
     Active Substance: CLOBETASOL PROPIONATE
     Dosage: UNK UNK, BID (EXTERNAL SOLUTION)
     Dates: start: 20200529
  13. PROAIR HFA [Concomitant]
     Active Substance: ALBUTEROL SULFATE
     Dosage: UNK UNK, AS NECESSARY (1-2 PUFFS EVERY 8-12 HRS PRN))

REACTIONS (4)
  - Therapeutic product effect incomplete [Unknown]
  - Nausea [Unknown]
  - Psoriasis [Not Recovered/Not Resolved]
  - Product supply issue [Unknown]

NARRATIVE: CASE EVENT DATE: 202007
